FAERS Safety Report 10335789 (Version 1)
Quarter: 2014Q3

REPORT INFORMATION
  Report Type: Spontaneous
  Country: US (occurrence: US)
  Receive Date: 20140723
  Receipt Date: 20140723
  Transmission Date: 20150326
  Serious: No
  Sender: FDA-Public Use
  Company Number: US-UNITED THERAPEUTICS-UTC-048298

PATIENT
  Age: 64 Year
  Sex: Female
  Weight: 58.96 kg

DRUGS (4)
  1. COUMADIN [Concomitant]
     Active Substance: WARFARIN SODIUM
  2. LETAIRIS [Concomitant]
     Active Substance: AMBRISENTAN
  3. REMODULIN [Suspect]
     Active Substance: TREPROSTINIL
     Dosage: 0.030 UG/KG/MINUTE
     Route: 058
     Dates: start: 20140102
  4. ADCIRCA [Concomitant]
     Active Substance: TADALAFIL

REACTIONS (1)
  - Viral infection [Unknown]

NARRATIVE: CASE EVENT DATE: 201404
